FAERS Safety Report 14551718 (Version 5)
Quarter: 2022Q2

REPORT INFORMATION
  Report Type: Spontaneous
  Country: US (occurrence: None)
  Receive Date: 20180220
  Receipt Date: 20220427
  Transmission Date: 20220720
  Serious: Yes (Death, Other)
  Sender: FDA-Public Use
  Company Number: 2018SE21204

PATIENT
  Age: 26276 Day
  Sex: Male
  Weight: 95.3 kg

DRUGS (54)
  1. NEXIUM [Suspect]
     Active Substance: ESOMEPRAZOLE MAGNESIUM
     Indication: Gastrooesophageal reflux disease
     Route: 048
     Dates: start: 2004, end: 2012
  2. NEXIUM [Suspect]
     Active Substance: ESOMEPRAZOLE MAGNESIUM
     Indication: Gastrooesophageal reflux disease
     Route: 048
     Dates: start: 2003, end: 2012
  3. NEXIUM [Suspect]
     Active Substance: ESOMEPRAZOLE MAGNESIUM
     Indication: Gastrooesophageal reflux disease
     Dosage: 40.0MG UNKNOWN
     Route: 048
  4. DEXILANT [Suspect]
     Active Substance: DEXLANSOPRAZOLE
     Indication: Gastrooesophageal reflux disease
     Route: 065
     Dates: start: 2012, end: 2017
  5. ADVAIR HFA [Concomitant]
     Active Substance: FLUTICASONE PROPIONATE\SALMETEROL XINAFOATE
     Indication: Chronic obstructive pulmonary disease
     Route: 065
     Dates: start: 2007
  6. AMOXICILLIN\CLAVULANATE POTASSIUM [Concomitant]
     Active Substance: AMOXICILLIN\CLAVULANATE POTASSIUM
     Indication: Antibiotic prophylaxis
     Dosage: 875-125 MG
     Route: 065
     Dates: start: 2008, end: 2010
  7. ANUCORT-HC [Concomitant]
     Active Substance: HYDROCORTISONE ACETATE
     Indication: Inflammation
     Dosage: 25.0MG UNKNOWN
     Route: 065
     Dates: start: 2006
  8. BENZONATATE [Concomitant]
     Active Substance: BENZONATATE
     Indication: Cough
     Dosage: 200.0MG UNKNOWN
     Route: 065
     Dates: start: 2006
  9. CELEBREX [Concomitant]
     Active Substance: CELECOXIB
     Indication: Arthritis
     Dosage: 200.0MG UNKNOWN
     Route: 065
     Dates: start: 2014
  10. CEPHALEXIN [Concomitant]
     Active Substance: CEPHALEXIN
     Indication: Arthritis
     Dosage: 200.0MG UNKNOWN
     Route: 065
     Dates: start: 2016
  11. CHLORHEXIDINE [Concomitant]
     Active Substance: CHLORHEXIDINE
     Indication: Wound treatment
     Dosage: 0.12 %
     Route: 065
     Dates: start: 2006, end: 2010
  12. CIALIS [Concomitant]
     Active Substance: TADALAFIL
     Indication: Erectile dysfunction
     Route: 065
     Dates: start: 2011
  13. CIPROFLOXACIN HYDROCHLORIDE [Concomitant]
     Active Substance: CIPROFLOXACIN HYDROCHLORIDE
     Indication: Antibiotic prophylaxis
     Dosage: 500.0MG UNKNOWN
     Route: 065
     Dates: start: 2007, end: 2008
  14. CIPROFLOXACIN HYDROCHLORIDE [Concomitant]
     Active Substance: CIPROFLOXACIN HYDROCHLORIDE
     Indication: Antibiotic prophylaxis
     Dosage: 500.0MG UNKNOWN
     Route: 065
     Dates: start: 2011
  15. CLOPIDOGREL [Concomitant]
     Active Substance: CLOPIDOGREL BISULFATE
     Indication: Antiplatelet therapy
     Dosage: 500.0MG UNKNOWN
     Route: 065
     Dates: start: 2013, end: 2016
  16. CLONAZEPAM [Concomitant]
     Active Substance: CLONAZEPAM
     Indication: Seizure
     Dosage: 0.5MG UNKNOWN
     Route: 065
     Dates: start: 2004, end: 2017
  17. CYCLOBENZAPRINE [Concomitant]
     Active Substance: CYCLOBENZAPRINE
     Indication: Muscle relaxant therapy
     Dosage: 10.0MG UNKNOWN
     Route: 065
     Dates: start: 2008
  18. DICLOFENAC SODIUM [Concomitant]
     Active Substance: DICLOFENAC SODIUM
     Indication: Swelling
     Dosage: 1 %
     Route: 065
     Dates: start: 2016
  19. DIFLUNISAL [Concomitant]
     Active Substance: DIFLUNISAL
     Indication: Arthritis
     Dosage: 500.0MG UNKNOWN
     Route: 065
     Dates: start: 2008
  20. DOXYCYCLINE HYCLATE [Concomitant]
     Active Substance: DOXYCYCLINE HYCLATE
     Indication: Antibiotic prophylaxis
     Dosage: 100.0MG UNKNOWN
     Route: 065
     Dates: start: 2006
  21. ELIQUIS [Concomitant]
     Active Substance: APIXABAN
     Indication: Antiplatelet therapy
     Dosage: 2.5MG UNKNOWN
     Route: 065
     Dates: start: 2016
  22. ENDOCET [Concomitant]
     Active Substance: ACETAMINOPHEN\OXYCODONE HYDROCHLORIDE
     Indication: Pain
     Route: 065
     Dates: start: 2014
  23. FELODIPINEEXTENDED-RELEASE TABLETS [Concomitant]
     Active Substance: FELODIPINE
     Indication: Blood calcium
     Dosage: 10.0MG UNKNOWN
     Route: 065
     Dates: start: 2006
  24. FENOFIBRATE [Concomitant]
     Active Substance: FENOFIBRATE
     Indication: Blood cholesterol
     Dosage: 134.0MG UNKNOWN
     Route: 065
     Dates: start: 2006
  25. FLOMAX [Concomitant]
     Active Substance: TAMSULOSIN HYDROCHLORIDE
     Indication: Muscle relaxant therapy
     Dosage: 0.4MG UNKNOWN
     Route: 065
     Dates: start: 2006
  26. FLONASE [Concomitant]
     Active Substance: FLUTICASONE PROPIONATE
     Indication: Inflammation
     Dosage: 0.05% UNKNOWN
     Route: 065
     Dates: start: 2008, end: 2011
  27. FLUOROURACIL [Concomitant]
     Active Substance: FLUOROURACIL
     Indication: Skin cancer
     Route: 065
     Dates: start: 2012
  28. FOSINOPRIL [Concomitant]
     Active Substance: FOSINOPRIL
     Indication: Blood pressure measurement
     Dosage: 20.0MG UNKNOWN
     Route: 065
     Dates: start: 2005, end: 2016
  29. FUROSEMIDE [Concomitant]
     Active Substance: FUROSEMIDE
     Indication: Blood pressure measurement
     Dosage: 20.0MG UNKNOWN
     Route: 065
     Dates: start: 2005, end: 2012
  30. HYDROCHLOROTHIAZIDE [Concomitant]
     Active Substance: HYDROCHLOROTHIAZIDE
     Indication: Blood pressure measurement
     Dosage: 25.0MG UNKNOWN
     Route: 065
     Dates: start: 2005
  31. ACETAMINOPHEN\HYDROCODONE [Concomitant]
     Active Substance: ACETAMINOPHEN\HYDROCODONE
     Indication: Pain
     Dosage: 10-650 TABS
     Route: 065
     Dates: start: 2010
  32. LIPITOR [Concomitant]
     Active Substance: ATORVASTATIN CALCIUM
     Indication: Blood cholesterol
     Dosage: 20.0MG UNKNOWN
     Route: 065
     Dates: start: 2004, end: 2006
  33. FISH OIL [Concomitant]
     Active Substance: FISH OIL
     Indication: Cardiovascular event prophylaxis
     Route: 065
     Dates: start: 2008, end: 201804
  34. TYLENOL [Concomitant]
     Active Substance: ACETAMINOPHEN
     Indication: Cardiovascular event prophylaxis
     Route: 065
     Dates: start: 2013, end: 201804
  35. PEPCID [Concomitant]
     Active Substance: FAMOTIDINE
     Route: 065
  36. ZANTAC [Concomitant]
     Active Substance: RANITIDINE HYDROCHLORIDE
     Route: 065
  37. VIAGRA [Concomitant]
     Active Substance: SILDENAFIL CITRATE
     Route: 065
  38. DEMECLOCYCLINE HYDROCHLORIDE/CHLORTETRACYCLINE HYDROCHLORIDE/TETRACYCL [Concomitant]
  39. GABAPENTIN [Concomitant]
     Active Substance: GABAPENTIN
  40. MUPIROCIN [Concomitant]
     Active Substance: MUPIROCIN
  41. NUCYNTA [Concomitant]
     Active Substance: TAPENTADOL HYDROCHLORIDE
  42. SERTRALINE [Concomitant]
     Active Substance: SERTRALINE HYDROCHLORIDE
  43. SIMVASTATIN [Concomitant]
     Active Substance: SIMVASTATIN
  44. THEOBROMA CACAO/GLUTAMIC ACID/CRATAEGUS LAEVIGATA FRUIT/TRAZODONE HYDR [Concomitant]
  45. FOLIC ACID [Concomitant]
     Active Substance: FOLIC ACID
  46. PROMETHAZINE [Concomitant]
     Active Substance: PROMETHAZINE HYDROCHLORIDE
  47. FAMOTIDINE [Concomitant]
     Active Substance: FAMOTIDINE
  48. NEOMYCIN [Concomitant]
     Active Substance: NEOMYCIN
  49. TAMSULOSIN [Concomitant]
     Active Substance: TAMSULOSIN
  50. METRONIDAZOLE/RIFAXIMIN [Concomitant]
  51. SPIRONOLACTONE [Concomitant]
     Active Substance: SPIRONOLACTONE
  52. PHYTONADIONE [Concomitant]
     Active Substance: PHYTONADIONE
  53. ONDANSETRON [Concomitant]
     Active Substance: ONDANSETRON
  54. HYDROMORPHONE [Concomitant]
     Active Substance: HYDROMORPHONE

REACTIONS (8)
  - Acute hepatic failure [Fatal]
  - Cardiac arrest [Fatal]
  - Chronic kidney disease [Unknown]
  - Tubulointerstitial nephritis [Unknown]
  - Acute kidney injury [Unknown]
  - Renal failure [Unknown]
  - Renal tubular necrosis [Unknown]
  - Nephrogenic anaemia [Unknown]

NARRATIVE: CASE EVENT DATE: 20180413
